FAERS Safety Report 12638355 (Version 6)
Quarter: 2019Q3

REPORT INFORMATION
  Report Type: Spontaneous
  Country: US (occurrence: US)
  Receive Date: 20160809
  Receipt Date: 20190723
  Transmission Date: 20191004
  Serious: Yes (Other)
  Sender: FDA-Public Use
  Company Number: US-SA-2016SA104324

PATIENT
  Sex: Male

DRUGS (1)
  1. PRALUENT [Suspect]
     Active Substance: ALIROCUMAB
     Dosage: UNK UNK,UNK
     Dates: start: 20151119

REACTIONS (5)
  - Dementia [Unknown]
  - Wrong technique in device usage process [Unknown]
  - Myalgia [Unknown]
  - Product administered at inappropriate site [Unknown]
  - Injury associated with device [Unknown]

NARRATIVE: CASE EVENT DATE: 201512
